FAERS Safety Report 9509740 (Version 1)
Quarter: 2013Q3

REPORT INFORMATION
  Report Type: Spontaneous
  Country: IT (occurrence: IT)
  Receive Date: 20130909
  Receipt Date: 20130909
  Transmission Date: 20140515
  Serious: Yes (Hospitalization)
  Sender: FDA-Public Use
  Company Number: IT-BAYER-2013-108003

PATIENT
  Age: 81 Year
  Sex: Male

DRUGS (10)
  1. CARDIOASPIRIN [Suspect]
     Indication: THROMBOSIS PROPHYLAXIS
     Dosage: DAILY DOSE 100 MG
     Route: 048
     Dates: start: 20130101, end: 20130825
  2. CARDIOASPIRIN [Suspect]
     Indication: THROMBOSIS PROPHYLAXIS
     Dosage: UNK
  3. ARIXTRA [Suspect]
     Indication: THROMBOSIS PROPHYLAXIS
     Dosage: 1 DF, ONCE
     Route: 058
     Dates: start: 20130825, end: 20130825
  4. SERTRALINE [Concomitant]
     Dosage: UNK
     Route: 048
  5. ALFUZOSIN [Concomitant]
  6. SINEMET [Concomitant]
     Dosage: UNK
     Route: 048
  7. SINEMET [Concomitant]
     Dosage: DAILY DOSE 2 DF
     Route: 048
  8. LANSOX [Concomitant]
     Route: 048
  9. AVODART [Concomitant]
     Route: 048
  10. DEURSIL [Concomitant]
     Route: 048

REACTIONS (6)
  - Syncope [Unknown]
  - Haematemesis [Unknown]
  - Decreased appetite [Unknown]
  - Abnormal loss of weight [Unknown]
  - Shock haemorrhagic [Unknown]
  - Gastric haemorrhage [Unknown]
